FAERS Safety Report 7166679-9 (Version None)
Quarter: 2010Q4

REPORT INFORMATION
  Report Type: 
  Country: None (occurrence: None)
  Receive Date: 20101203
  Receipt Date: 20101119
  Transmission Date: 20110411
  Serious: Yes (Congenital Anomaly)
  Sender: FDA-Public Use
  Company Number: 1000017492

PATIENT

DRUGS (3)
  1. ESCITALOPRAM [Suspect]
     Dosage: 20 MG (20 MG,1 IN 1 D),TRANSPLACENTAL
     Route: 064
  2. CYMBALTA [Suspect]
     Dosage: 60 MG (60 MG,1 IN 1 D),TRANSPLACENTAL
     Route: 064
  3. YASMINELLE (DROSPIRENONE, ETHINYL ESTRADIOL) (DROSPIRENONE, ETHINYL ES [Concomitant]

REACTIONS (4)
  - CONGENITAL ANOMALY [None]
  - FOETAL MALFORMATION [None]
  - MATERNAL DRUGS AFFECTING FOETUS [None]
  - OLIGOHYDRAMNIOS [None]
